FAERS Safety Report 5867594-0 (Version None)
Quarter: 2008Q3

REPORT INFORMATION
  Report Type: 
  Country: None (occurrence: None)
  Receive Date: 20080902
  Receipt Date: 20070926
  Transmission Date: 20090109
  Serious: No
  Sender: FDA-Public Use
  Company Number: US-ABBOTT-07P-163-0418807-00

PATIENT
  Sex: Male
  Weight: 74.91 kg

DRUGS (1)
  1. DEPAKOTE ER [Suspect]
     Indication: EPILEPSY
     Route: 048
     Dates: start: 20050101, end: 20050101

REACTIONS (2)
  - ADVERSE DRUG REACTION [None]
  - MOOD SWINGS [None]
